FAERS Safety Report 7555353-2 (Version None)
Quarter: 2011Q2

REPORT INFORMATION
  Report Type: 
  Country: None (occurrence: None)
  Receive Date: 20110617
  Receipt Date: 20110616
  Transmission Date: 20111010
  Serious: Yes (Other)
  Sender: FDA-Public Use
  Company Number: US-AMGEN-USASP2011029531

PATIENT
  Age: 71 Year
  Sex: Male
  Weight: 106.12 kg

DRUGS (8)
  1. SIMVASTATIN [Concomitant]
  2. SPIRONOLACTONE [Concomitant]
  3. NPLATE [Suspect]
  4. NPLATE [Suspect]
  5. FUROSEMIDE [Concomitant]
  6. NPLATE [Suspect]
     Indication: IDIOPATHIC THROMBOCYTOPENIC PURPURA
     Dosage: 300 A?, UNK
     Route: 058
     Dates: start: 20100610
  7. ATENOLOL [Concomitant]
  8. CALCIUM CARBONATE [Concomitant]

REACTIONS (1)
  - PLATELET COUNT DECREASED [None]
